FAERS Safety Report 19673696 (Version 1)
Quarter: 2021Q3

REPORT INFORMATION
  Report Type: Spontaneous
  Country: US (occurrence: US)
  Receive Date: 20210807
  Receipt Date: 20210807
  Transmission Date: 20211014
  Serious: Yes (Hospitalization, Disabling)
  Sender: FDA-Public Use
  Company Number: None

PATIENT
  Age: 22 Year
  Sex: Female
  Weight: 86.85 kg

DRUGS (9)
  1. MOXIFLOXACIN. [Suspect]
     Active Substance: MOXIFLOXACIN
     Indication: PNEUMONIA
     Dosage: ?          QUANTITY:1 TABLET(S);?
     Route: 048
     Dates: start: 20210731, end: 20210803
  2. VITAMIN D [Concomitant]
     Active Substance: VITAMIN D NOS
  3. FISH/KRILL OIL [Concomitant]
  4. VITAMIN E [Concomitant]
     Active Substance: .ALPHA.-TOCOPHEROL
  5. GABAPENTIN. [Concomitant]
     Active Substance: GABAPENTIN
  6. HYDROXYZINE HCL [Concomitant]
     Active Substance: HYDROXYZINE HYDROCHLORIDE
  7. TIZANIDINE. [Concomitant]
     Active Substance: TIZANIDINE
  8. VENTOLIN HFA [Concomitant]
     Active Substance: ALBUTEROL SULFATE
  9. MULTIVITAMINS [Concomitant]
     Active Substance: VITAMINS

REACTIONS (5)
  - Polyneuropathy [None]
  - Distractibility [None]
  - Diplopia [None]
  - Memory impairment [None]
  - Speech disorder [None]

NARRATIVE: CASE EVENT DATE: 20210731
